FAERS Safety Report 16764287 (Version 3)
Quarter: 2021Q3

REPORT INFORMATION
  Report Type: Spontaneous
  Country: GB (occurrence: GB)
  Receive Date: 20190902
  Receipt Date: 20210924
  Transmission Date: 20211014
  Serious: Yes (Other)
  Sender: FDA-Public Use
  Company Number: GB-PFIZER INC-2016541153

PATIENT
  Age: 7 Month
  Sex: Female

DRUGS (23)
  1. INFLIXIMAB [Suspect]
     Active Substance: INFLIXIMAB
     Dosage: UNK (DURING 1ST TRANSPLANTATION)
     Route: 065
  2. ALEMTUZUMAB [Suspect]
     Active Substance: ALEMTUZUMAB
     Indication: IMMUNOSUPPRESSANT DRUG THERAPY
     Dosage: 1 MG/KG, UNK (FIRST TRANSPLANT: AGE 7 MONTHS)
     Route: 065
  3. THYMOGLOBULIN [Suspect]
     Active Substance: LAPINE T-LYMPHOCYTE IMMUNE GLOBULIN
     Indication: IMMUNOSUPPRESSANT DRUG THERAPY
     Dosage: 15 MG/KG, UNK (OVER DAYS 25 TO 23)
     Route: 065
  4. TACROLIMUS. [Suspect]
     Active Substance: TACROLIMUS
     Dosage: UNK
     Route: 065
  5. THIOTEPA. [Suspect]
     Active Substance: THIOTEPA
     Indication: IMMUNOSUPPRESSANT DRUG THERAPY
     Dosage: 15 MG/KG, UNK (SECOND TRANSPLANT: AGE 18 MONTHS)
     Route: 065
  6. METHYLPREDNISOLONE. [Suspect]
     Active Substance: METHYLPREDNISOLONE
     Dosage: 2 MG/KG, UNK (DOSE AT THE TIME OF FIRST TRANSPLANT (AGE OF 7 MONTHS)
     Route: 065
  7. FLUDARABINE PHOSPHATE. [Suspect]
     Active Substance: FLUDARABINE PHOSPHATE
     Dosage: 150 MG/M2, UNK (SECOND TRANSPLANT: AGE 18 MONTHS)
     Route: 065
  8. MYCOPHENOLATE MOFETIL. [Suspect]
     Active Substance: MYCOPHENOLATE MOFETIL
     Indication: PROPHYLAXIS AGAINST GRAFT VERSUS HOST DISEASE
     Dosage: UNK (DURING 2ND TRANSPLANTATION)
     Route: 065
  9. METHYLPREDNISOLONE. [Suspect]
     Active Substance: METHYLPREDNISOLONE
     Indication: IMMUNOSUPPRESSANT DRUG THERAPY
     Dosage: 2 MG/KG, UNK (DOSE AT THE TIME OF FIRST TRANSPLANT (AGE OF 18 MONTHS)
     Route: 065
  10. ALEMTUZUMAB [Suspect]
     Active Substance: ALEMTUZUMAB
     Dosage: 0.3 MG/KG, UNK (LOW DOSE (SECOND TRANSPLANT: 18 MONTHS)
     Route: 065
  11. TREOSULFAN [Suspect]
     Active Substance: TREOSULFAN
     Indication: IMMUNOSUPPRESSANT DRUG THERAPY
     Dosage: 36 MG/M2, UNK (FIRST TRANSPLANT:AGE 7 MONTHS)
     Route: 065
  12. BCG [Suspect]
     Active Substance: BCG VACCINE
     Indication: IMMUNISATION
     Dosage: UNK
     Route: 065
  13. THIOTEPA. [Suspect]
     Active Substance: THIOTEPA
     Dosage: 10 MG/KG, UNK (DAY 24)
     Route: 065
  14. INFLIXIMAB [Suspect]
     Active Substance: INFLIXIMAB
     Indication: IMMUNOSUPPRESSANT DRUG THERAPY
     Dosage: UNK, WEEKLY (DURING 2ND TRANSPLANTATION)
     Route: 065
  15. TREOSULFAN [Suspect]
     Active Substance: TREOSULFAN
     Dosage: 36 MG/M2, UNK (SECOND TRANSPLANT: AGE 18 MONTHS)
     Route: 065
  16. HYDROCORTISONE. [Concomitant]
     Active Substance: HYDROCORTISONE
     Dosage: UNK
     Dates: start: 201509, end: 201510
  17. URSODEOXYCHOLIC ACID [Concomitant]
     Active Substance: URSODIOL
     Dosage: UNK
  18. TREOSULFAN [Suspect]
     Active Substance: TREOSULFAN
     Dosage: UNK (36?42 G/M2 TOTAL DOSE:DAYS 27 TO 25)
     Route: 065
  19. FLUDARABINE PHOSPHATE. [Suspect]
     Active Substance: FLUDARABINE PHOSPHATE
     Indication: IMMUNOSUPPRESSANT DRUG THERAPY
     Dosage: 150 MG/M2, UNK (150 MG/M2, FIRST TRANSPLANT: AGE 7 MONTHS)
     Route: 065
  20. FLUDARABINE PHOSPHATE. [Suspect]
     Active Substance: FLUDARABINE PHOSPHATE
     Dosage: 160 MG/M2 TOTAL DOSE DAYS 27 TO 24)
     Route: 065
  21. CICLOSPORIN [Suspect]
     Active Substance: CYCLOSPORINE
     Indication: PROPHYLAXIS AGAINST GRAFT VERSUS HOST DISEASE
     Dosage: UNK (TROUGH TARGET 50?100 MMOL/L)
     Route: 065
  22. MYCOPHENOLATE MOFETIL. [Suspect]
     Active Substance: MYCOPHENOLATE MOFETIL
     Dosage: UNK (DURING 1ST TRANSPLANTATION)
     Route: 065
  23. CIDOFOVIR. [Suspect]
     Active Substance: CIDOFOVIR
     Indication: IMMUNOSUPPRESSANT DRUG THERAPY
     Dosage: UNK
     Route: 065

REACTIONS (5)
  - Pneumonitis [Unknown]
  - Hypertension [Unknown]
  - Drug ineffective [Unknown]
  - Mucosal inflammation [Unknown]
  - Cytomegalovirus infection [Unknown]
